FAERS Safety Report 7477598-2 (Version None)
Quarter: 2011Q2

REPORT INFORMATION
  Report Type: 
  Country: None (occurrence: None)
  Receive Date: 20110513
  Receipt Date: 20110510
  Transmission Date: 20111010
  Serious: Yes (Life-Threatening, Hospitalization, Other)
  Sender: FDA-Public Use
  Company Number: US-ASTELLAS-2011US002089

PATIENT
  Sex: Male
  Weight: 79 kg

DRUGS (1)
  1. PROGRAF [Suspect]
     Indication: STEM CELL TRANSPLANT
     Dosage: 2 MG, BID
     Route: 048

REACTIONS (4)
  - DEHYDRATION [None]
  - OFF LABEL USE [None]
  - DIARRHOEA [None]
  - GRAFT VERSUS HOST DISEASE [None]
